FAERS Safety Report 5811754-1 (Version None)
Quarter: 2008Q3

REPORT INFORMATION
  Report Type: 
  Country: None (occurrence: None)
  Receive Date: 20080716
  Receipt Date: 20080710
  Transmission Date: 20090109
  Serious: Yes (Other)
  Sender: FDA-Public Use
  Company Number: B0529307A

PATIENT
  Sex: Male

DRUGS (3)
  1. WELLBUTRIN [Suspect]
     Indication: DEPRESSION
     Dosage: 150MG PER DAY
     Route: 048
     Dates: start: 20080625
  2. EFFEXOR [Concomitant]
     Indication: DEPRESSION
     Dosage: 75MG PER DAY
  3. STEROIDS [Concomitant]

REACTIONS (4)
  - COUGH [None]
  - HYPOCHONDRIASIS [None]
  - LOSS OF CONSCIOUSNESS [None]
  - TINNITUS [None]
